FAERS Safety Report 19942691 (Version 1)
Quarter: 2021Q4

REPORT INFORMATION
  Report Type: Spontaneous
  Country: FR (occurrence: FR)
  Receive Date: 20211012
  Receipt Date: 20211012
  Transmission Date: 20220303
  Serious: Yes (Hospitalization)
  Sender: FDA-Public Use
  Company Number: None

PATIENT
  Age: 52 Year
  Sex: Female

DRUGS (3)
  1. CERTICAN [Suspect]
     Active Substance: EVEROLIMUS
     Indication: Prophylaxis against transplant rejection
     Dosage: UNK (ADAPTEE AUX DOSAGES PLASMATIQUES)
     Route: 048
     Dates: start: 2014
  2. TACROLIMUS [Interacting]
     Active Substance: TACROLIMUS
     Indication: Prophylaxis against transplant rejection
     Dosage: UNK (0,5 MG, GELULE A LIBERATION PROLONGEE) (ADAPTEE AUX DOSAGES PLASMATIQUES)
     Route: 048
     Dates: start: 2014
  3. NOXAFIL [Interacting]
     Active Substance: POSACONAZOLE
     Indication: Bronchopulmonary aspergillosis
     Dosage: 300 MG, BID  (600  MG/J)
     Route: 048
     Dates: start: 20210902, end: 20210912

REACTIONS (2)
  - Immunosuppressant drug level increased [Unknown]
  - Thrombocytopenia [Unknown]

NARRATIVE: CASE EVENT DATE: 20210906
